FAERS Safety Report 16135502 (Version 1)
Quarter: 2019Q1

REPORT INFORMATION
  Report Type: Spontaneous
  Country: US (occurrence: US)
  Receive Date: 20190329
  Receipt Date: 20190329
  Transmission Date: 20190418
  Serious: No
  Sender: FDA-Public Use
  Company Number: US-SUNOVION-2019SUN001206

PATIENT
  Sex: Male

DRUGS (2)
  1. LATUDA [Suspect]
     Active Substance: LURASIDONE HYDROCHLORIDE
     Dosage: 40 MG
     Route: 048
  2. LATUDA [Suspect]
     Active Substance: LURASIDONE HYDROCHLORIDE
     Dosage: HALF TABLET, 40 MG
     Route: 048

REACTIONS (7)
  - Abnormal behaviour [Unknown]
  - Prosopagnosia [Unknown]
  - Aggression [Unknown]
  - Agitation [Unknown]
  - Wrong technique in product usage process [Unknown]
  - Off label use [Unknown]
  - Depression [Unknown]
